FAERS Safety Report 8551394-7 (Version None)
Quarter: 2012Q3

REPORT INFORMATION
  Report Type: 
  Country: None (occurrence: None)
  Receive Date: 20120730
  Receipt Date: 20120215
  Transmission Date: 20120928
  Serious: No
  Sender: FDA-Public Use
  Company Number: US-ALLERGAN-1200692US

PATIENT
  Age: 73 Year
  Sex: Female

DRUGS (2)
  1. REFRESH OPTIVE SENSITIVE [Suspect]
     Indication: DRY EYE
     Dosage: 2 GTT, QID
     Route: 047
     Dates: start: 20110901
  2. LUMIGAN [Suspect]
     Indication: INTRAOCULAR PRESSURE TEST
     Dosage: 2 GTT, QPM
     Route: 047
     Dates: start: 20110901

REACTIONS (3)
  - NASOPHARYNGITIS [None]
  - BRONCHITIS [None]
  - EYE IRRITATION [None]
